FAERS Safety Report 6926762-7 (Version None)
Quarter: 2010Q3

REPORT INFORMATION
  Report Type: 
  Country: None (occurrence: None)
  Receive Date: 20100816
  Receipt Date: 20100617
  Transmission Date: 20110219
  Serious: No
  Sender: FDA-Public Use
  Company Number: US-ABBOTT-10P-163-0653061-00

PATIENT
  Sex: Female
  Weight: 90.8 kg

DRUGS (1)
  1. SIMCOR [Suspect]
     Indication: BLOOD CHOLESTEROL
     Dosage: 1 IN 1 DAYS (550/20X2)

REACTIONS (3)
  - DRUG DOSE OMISSION [None]
  - RASH [None]
  - URTICARIA [None]
